FAERS Safety Report 4781582-7 (Version None)
Quarter: 2005Q3

REPORT INFORMATION
  Report Type: 
  Country: None (occurrence: None)
  Receive Date: 20050927
  Receipt Date: 20050919
  Transmission Date: 20060218
  Serious: Yes (Hospitalization, Other)
  Sender: FDA-Public Use
  Company Number: 2005BI017360

PATIENT
  Age: 53 Year
  Sex: Female
  Weight: 51 kg

DRUGS (5)
  1. AVONEX [Suspect]
     Indication: MULTIPLE SCLEROSIS
     Dosage: 30 UG; QW; IM
     Route: 030
     Dates: start: 20010501, end: 20031101
  2. AVONEX [Suspect]
     Indication: MULTIPLE SCLEROSIS
     Dosage: 30 UG; QW; IM
     Route: 030
     Dates: start: 20031101
  3. DETROL [Concomitant]
  4. NEURONTIN [Concomitant]
  5. MACRODANTIN [Concomitant]

REACTIONS (4)
  - BACK DISORDER [None]
  - COMPUTERISED TOMOGRAM ABNORMAL [None]
  - GASTRIC CANCER [None]
  - NEOPLASM MALIGNANT [None]
